FAERS Safety Report 13927625 (Version 4)
Quarter: 2017Q4

REPORT INFORMATION
  Report Type: Spontaneous
  Country: US (occurrence: US)
  Receive Date: 20170831
  Receipt Date: 20171012
  Transmission Date: 20180320
  Serious: Yes (Hospitalization, Other)
  Sender: FDA-Public Use
  Company Number: US-JAZZ-JPI-P-033507

PATIENT
  Age: 56 Year
  Sex: Male
  Weight: 113.64 kg

DRUGS (10)
  1. METHYLPHENIDATE HYDROCHLORIDE. [Concomitant]
     Active Substance: METHYLPHENIDATE HYDROCHLORIDE
     Indication: NARCOLEPSY
  2. XYREM [Suspect]
     Active Substance: SODIUM OXYBATE
     Dosage: 3.75G, BID
     Route: 048
     Dates: start: 201306, end: 201611
  3. CARVEDILOL. [Concomitant]
     Active Substance: CARVEDILOL
  4. XYREM [Suspect]
     Active Substance: SODIUM OXYBATE
     Indication: CATAPLEXY
     Dosage: UNKNOWN SINGLE DOSE
     Route: 048
     Dates: end: 2009
  5. PRAVASTATIN SODIUM. [Concomitant]
     Active Substance: PRAVASTATIN SODIUM
     Indication: BLOOD CHOLESTEROL INCREASED
  6. XYREM [Suspect]
     Active Substance: SODIUM OXYBATE
     Indication: NARCOLEPSY
     Dosage: 6G, QD
     Route: 048
     Dates: start: 20021031
  7. HYDRALAZINE [Concomitant]
     Active Substance: HYDRALAZINE HYDROCHLORIDE
     Indication: PRODUCT USED FOR UNKNOWN INDICATION
  8. METHYLPHENIDATE HYDROCHLORIDE. [Concomitant]
     Active Substance: METHYLPHENIDATE HYDROCHLORIDE
     Indication: CATAPLEXY
  9. MORPHINE SULFATE. [Concomitant]
     Active Substance: MORPHINE SULFATE
     Indication: PAIN
  10. PHENERGAN [Concomitant]
     Active Substance: PROMETHAZINE HYDROCHLORIDE
     Indication: PRODUCT USED FOR UNKNOWN INDICATION

REACTIONS (22)
  - Hypotension [Recovering/Resolving]
  - Blood cholesterol increased [Unknown]
  - Cataplexy [Not Recovered/Not Resolved]
  - Orthostatic hypertension [Recovering/Resolving]
  - Vision blurred [Recovered/Resolved]
  - General physical health deterioration [Not Recovered/Not Resolved]
  - Back pain [Unknown]
  - Nerve injury [Unknown]
  - Spinal fusion surgery [Unknown]
  - Shoulder arthroplasty [Unknown]
  - Discomfort [Unknown]
  - Spinal column injury [Unknown]
  - Fall [Recovered/Resolved]
  - Dysarthria [Recovered/Resolved]
  - Cerebrovascular accident [Unknown]
  - Dyspnoea [Recovered/Resolved]
  - Hemiplegia [Unknown]
  - Muscle spasms [Not Recovered/Not Resolved]
  - Joint injury [Unknown]
  - Limb injury [Unknown]
  - Chest pain [Unknown]
  - Loss of consciousness [Unknown]

NARRATIVE: CASE EVENT DATE: 2013
